FAERS Safety Report 5097282-2 (Version None)
Quarter: 2006Q3

REPORT INFORMATION
  Report Type: 
  Country: None (occurrence: None)
  Receive Date: 20060906
  Receipt Date: 20060828
  Transmission Date: 20061208
  Serious: Yes (Hospitalization)
  Sender: FDA-Public Use
  Company Number: PHNU2006DE02939

PATIENT
  Age: 35 Year
  Sex: Female

DRUGS (5)
  1. PREDNISONE TAB [Suspect]
     Indication: OSTEOARTHRITIS
     Dosage: 9MG/DAY
  2. SANDIMMUNE [Suspect]
     Indication: PEMPHIGOID
     Dosage: 100 MG, QD
     Route: 048
     Dates: start: 20050101
  3. SANDIMMUNE [Suspect]
     Dosage: 75 MG, QD
     Route: 048
  4. SANDIMMUNE [Suspect]
     Dosage: 150 MG, QD
     Route: 048
  5. SANDIMMUNE [Suspect]
     Dosage: 50 MG, QD
     Route: 048

REACTIONS (9)
  - ABDOMINAL PAIN UPPER [None]
  - ARTHRITIS [None]
  - CATARACT [None]
  - CATARACT OPERATION [None]
  - EYE LASER SURGERY [None]
  - GAMMA-GLUTAMYLTRANSFERASE INCREASED [None]
  - GLAUCOMA [None]
  - TRANSAMINASES INCREASED [None]
  - VISUAL ACUITY REDUCED [None]
